FAERS Safety Report 6546406-6 (Version None)
Quarter: 2010Q1

REPORT INFORMATION
  Report Type: 
  Country: None (occurrence: None)
  Receive Date: 20100122
  Receipt Date: 20100114
  Transmission Date: 20100710
  Serious: Yes (Hospitalization, Other)
  Sender: FDA-Public Use
  Company Number: US-ASTRAZENECA-2010SE01675

PATIENT
  Age: 79 Year
  Sex: Female
  Weight: 68 kg

DRUGS (10)
  1. NEXIUM [Suspect]
     Indication: GASTROOESOPHAGEAL REFLUX DISEASE
     Route: 048
     Dates: start: 20070101
  2. NEXIUM [Suspect]
     Indication: GASTRIC ULCER HAEMORRHAGE
     Route: 048
     Dates: start: 20070101
  3. NEXIUM [Suspect]
     Route: 048
     Dates: start: 20091108
  4. NEXIUM [Suspect]
     Route: 048
     Dates: start: 20091108
  5. SUCRALFATE [Concomitant]
  6. FERROUS [Concomitant]
  7. REGLAN [Concomitant]
  8. MIRAPEX [Concomitant]
  9. POTASSIUM [Concomitant]
  10. SIMVASTATIN [Concomitant]

REACTIONS (2)
  - SHOULDER ARTHROPLASTY [None]
  - ULCER [None]
